FAERS Safety Report 14719103 (Version 1)
Quarter: 2018Q2

REPORT INFORMATION
  Report Type: Spontaneous
  Country: US (occurrence: US)
  Receive Date: 20180405
  Receipt Date: 20180405
  Transmission Date: 20180711
  Serious: Yes (Life-Threatening, Hospitalization, Other)
  Sender: FDA-Public Use
  Company Number: US-BAUSCH-BL-2018-009560

PATIENT
  Age: 55 Year
  Sex: Female

DRUGS (1)
  1. METFORMIN [Suspect]
     Active Substance: METFORMIN HYDROCHLORIDE
     Indication: TYPE 2 DIABETES MELLITUS
     Route: 065

REACTIONS (5)
  - Acute kidney injury [Recovering/Resolving]
  - Cardiac arrest [Recovered/Resolved]
  - Lactic acidosis [Recovering/Resolving]
  - Condition aggravated [Recovering/Resolving]
  - Circulatory collapse [Recovering/Resolving]
